FAERS Safety Report 5162795-1 (Version None)
Quarter: 2006Q4

REPORT INFORMATION
  Report Type: 
  Country: None (occurrence: None)
  Receive Date: 20061121
  Receipt Date: 20061113
  Transmission Date: 20070319
  Serious: Yes (Hospitalization)
  Sender: FDA-Public Use
  Company Number: 2006US002615

PATIENT
  Sex: Male

DRUGS (1)
  1. PROGRAF [Suspect]
     Indication: RENAL TRANSPLANT
     Dosage: ORAL
     Route: 048
     Dates: start: 19920101

REACTIONS (6)
  - ANOREXIA [None]
  - CARDIAC FAILURE CONGESTIVE [None]
  - DIALYSIS [None]
  - PAIN [None]
  - PARACENTESIS ABDOMEN [None]
  - RENAL FAILURE [None]
